FAERS Safety Report 15656869 (Version 3)
Quarter: 2023Q2

REPORT INFORMATION
  Report Type: Spontaneous
  Country: US (occurrence: US)
  Receive Date: 20181126
  Receipt Date: 20230407
  Transmission Date: 20230721
  Serious: Yes (Other)
  Sender: FDA-Public Use
  Company Number: US-GILEAD-2018-0376047

PATIENT
  Age: 61 Year
  Sex: Female
  Weight: 120.64 kg

DRUGS (17)
  1. TRUVADA [Suspect]
     Active Substance: EMTRICITABINE\TENOFOVIR DISOPROXIL FUMARATE
     Indication: HIV infection
     Dosage: UNK
     Route: 048
     Dates: start: 2004, end: 201302
  2. STRIBILD [Suspect]
     Active Substance: COBICISTAT\ELVITEGRAVIR\EMTRICITABINE\TENOFOVIR DISOPROXIL FUMARATE
     Indication: HIV infection
     Dosage: UNK
     Route: 048
     Dates: start: 201302, end: 2016
  3. COMBIVIR [Concomitant]
     Active Substance: LAMIVUDINE\ZIDOVUDINE
  4. GENVOYA [Concomitant]
     Active Substance: COBICISTAT\ELVITEGRAVIR\EMTRICITABINE\TENOFOVIR ALAFENAMIDE FUMARATE
  5. INVIRASE [Concomitant]
     Active Substance: SAQUINAVIR MESYLATE
  6. ISENTRESS [Concomitant]
     Active Substance: RALTEGRAVIR POTASSIUM
  7. KALETRA [Concomitant]
     Active Substance: LOPINAVIR\RITONAVIR
  8. PREZISTA [Concomitant]
     Active Substance: DARUNAVIR ETHANOLATE
  9. VIDEX EC [Concomitant]
     Active Substance: DIDANOSINE
  10. SYNTHROID [Concomitant]
     Active Substance: LEVOTHYROXINE SODIUM
  11. FUROSEMIDE [Concomitant]
     Active Substance: FUROSEMIDE
  12. SUSTIVA [Concomitant]
     Active Substance: EFAVIRENZ
  13. ZERIT [Concomitant]
     Active Substance: STAVUDINE
  14. VIRACEPT [Concomitant]
     Active Substance: NELFINAVIR MESYLATE
  15. ZIAGEN [Concomitant]
     Active Substance: ABACAVIR SULFATE
  16. TYLENOL [Concomitant]
     Active Substance: ACETAMINOPHEN
  17. CALCIUM CARBONATE [Concomitant]
     Active Substance: CALCIUM CARBONATE

REACTIONS (8)
  - Chronic kidney disease [Not Recovered/Not Resolved]
  - Renal pain [Unknown]
  - Back pain [Unknown]
  - Pain [Not Recovered/Not Resolved]
  - Emotional distress [Not Recovered/Not Resolved]
  - Anxiety [Not Recovered/Not Resolved]
  - Anhedonia [Not Recovered/Not Resolved]
  - Economic problem [Unknown]

NARRATIVE: CASE EVENT DATE: 20141201
